FAERS Safety Report 6031201-7 (Version None)
Quarter: 2008Q4

REPORT INFORMATION
  Report Type: 
  Country: None (occurrence: None)
  Receive Date: 20081224
  Receipt Date: 20071130
  Transmission Date: 20090506
  Serious: Yes (Other)
  Sender: FDA-Public Use
  Company Number: 20070314  /

PATIENT
  Age: 59 Year
  Sex: Female

DRUGS (12)
  1. VENOFER [Suspect]
     Indication: IRON DEFICIENCY ANAEMIA
     Dosage: 500 MG WEEK X 2 DOSES
     Dates: start: 20071023, end: 20071030
  2. GLYBURIDE [Concomitant]
  3. PHOSLO [Concomitant]
  4. NEPHROCAPS [Concomitant]
  5. ASPIRIN [Concomitant]
  6. COREG [Concomitant]
  7. ZOLOFT [Concomitant]
  8. LISINOPRIL [Concomitant]
  9. LOTRISONE [Concomitant]
  10. GENTAMYCIN CREAM [Concomitant]
  11. ARANESP [Concomitant]
  12. INSULIN [Concomitant]

REACTIONS (2)
  - HYPOGLYCAEMIA [None]
  - PERITONITIS [None]
